FAERS Safety Report 5598335-2 (Version None)
Quarter: 2008Q1

REPORT INFORMATION
  Report Type: 
  Country: None (occurrence: None)
  Receive Date: 20080122
  Receipt Date: 20080114
  Transmission Date: 20080703
  Serious: Yes (Hospitalization)
  Sender: FDA-Public Use
  Company Number: B0503763A

PATIENT
  Age: 79 Year
  Sex: Female

DRUGS (19)
  1. AUGMENTIN '125' [Suspect]
     Indication: SEPTIC SHOCK
     Route: 048
     Dates: start: 20071122, end: 20071127
  2. CLAMOXYL [Suspect]
     Indication: SEPTIC SHOCK
     Route: 048
     Dates: start: 20071127, end: 20071210
  3. INEXIUM [Suspect]
     Indication: DRUG USE FOR UNKNOWN INDICATION
     Route: 048
     Dates: start: 20071127, end: 20071208
  4. CORDIPATCH [Suspect]
     Indication: DRUG USE FOR UNKNOWN INDICATION
     Route: 061
     Dates: end: 20071208
  5. DIGOXIN [Concomitant]
     Dates: end: 20071122
  6. PRACTAZIN [Concomitant]
     Dates: end: 20071122
  7. SINTROM [Concomitant]
     Dates: end: 20071122
  8. AMARYL [Concomitant]
     Dates: end: 20071122
  9. GLUCOPHAGE [Concomitant]
     Dates: end: 20071122
  10. DOLIPRANE [Concomitant]
     Dates: end: 20071122
  11. DIOVENOR [Concomitant]
     Dates: end: 20071122
  12. COVERSYL [Concomitant]
     Dates: end: 20071122
  13. FUCIDINE CAP [Concomitant]
     Route: 050
     Dates: start: 20071122
  14. INSULIN [Concomitant]
     Dates: start: 20071122
  15. PROTHROMBIN COMPLEX [Concomitant]
     Dates: start: 20071122
  16. KAYEXALATE [Concomitant]
     Dates: start: 20071122
  17. VITAMIN K [Concomitant]
     Dates: start: 20071122
  18. FORLAX [Concomitant]
     Dates: start: 20071122
  19. LASIX [Concomitant]
     Dates: start: 20071127

REACTIONS (5)
  - DERMATITIS BULLOUS [None]
  - RASH ERYTHEMATOUS [None]
  - RASH GENERALISED [None]
  - SKIN DISORDER [None]
  - TOXIC EPIDERMAL NECROLYSIS [None]
